FAERS Safety Report 5750600-1 (Version None)
Quarter: 2008Q2

REPORT INFORMATION
  Report Type: 
  Country: None (occurrence: None)
  Receive Date: 20080523
  Receipt Date: 20080523
  Transmission Date: 20081010
  Serious: Yes (Death, Other)
  Sender: FDA-Public Use
  Company Number: None

PATIENT
  Age: 99 Year
  Sex: Female
  Weight: 58.9676 kg

DRUGS (8)
  1. DIGITEK  0.125 MG  ACTAVIS TOTOWA LLC/ BERTEK [Suspect]
     Indication: ARRHYTHMIA
  2. DIGITEK  0.125 MG  ACTAVIS TOTOWA LLC/ BERTEK [Suspect]
     Indication: CARDIAC FAILURE
  3. FUROSEMIDE [Concomitant]
  4. FAMOTODINE [Concomitant]
  5. POTASSIUM CHLORIDE [Concomitant]
  6. WARFARIN SODIUM [Concomitant]
  7. ENALAPRIL MALEATE [Concomitant]
  8. DILTIAZEM [Concomitant]

REACTIONS (9)
  - BRADYCARDIA [None]
  - BURNING SENSATION [None]
  - CARDIAC DISORDER [None]
  - DIZZINESS [None]
  - GENERAL PHYSICAL HEALTH DETERIORATION [None]
  - HYPOTENSION [None]
  - NAUSEA [None]
  - PHARMACEUTICAL PRODUCT COMPLAINT [None]
  - VOMITING [None]
